FAERS Safety Report 4379737-9 (Version None)
Quarter: 2004Q2

REPORT INFORMATION
  Report Type: 
  Country: None (occurrence: None)
  Receive Date: 20040617
  Receipt Date: 20040601
  Transmission Date: 20050107
  Serious: Yes (Hospitalization)
  Sender: FDA-Public Use
  Company Number: JP-GLAXOSMITHKLINE-B0334426A

PATIENT
  Age: 63 Year
  Sex: Male

DRUGS (12)
  1. ALLOPURINOL TAB [Suspect]
     Route: 048
     Dates: start: 20040516
  2. DIGOSIN [Suspect]
     Route: 065
     Dates: end: 20040530
  3. LASIX [Concomitant]
     Route: 065
  4. DIART [Concomitant]
     Route: 048
  5. FLUITRAN [Concomitant]
     Route: 048
  6. ALDACTONE A [Concomitant]
     Route: 048
  7. ACARDI [Concomitant]
     Route: 048
  8. WARFARIN SODIUM [Concomitant]
     Route: 048
  9. ALESION [Concomitant]
     Route: 048
  10. DASEN [Concomitant]
     Route: 048
  11. THYRADIN [Concomitant]
     Route: 048
  12. TAKEPRON [Concomitant]
     Route: 048

REACTIONS (1)
  - RENAL FAILURE [None]
